FAERS Safety Report 8538856-3 (Version None)
Quarter: 2012Q3

REPORT INFORMATION
  Report Type: 
  Country: None (occurrence: None)
  Receive Date: 20120726
  Receipt Date: 20120716
  Transmission Date: 20120928
  Serious: Yes (Hospitalization)
  Sender: FDA-Public Use
  Company Number: US-GENZYME-LEUK-1000293

PATIENT
  Age: 71 Year
  Sex: Male
  Weight: 92 kg

DRUGS (12)
  1. LEUKINE [Suspect]
     Dosage: 250 MCG, QD (ON DAYS 1-14) MAINTENANCE THERAPY
     Route: 058
  2. ZOLPIDEM TARTRATE [Concomitant]
     Indication: SLEEP DISORDER
     Dosage: 10 MG, Q1HR, PRN
     Route: 048
  3. PREDNISONE [Concomitant]
     Indication: PRODUCT USED FOR UNKNOWN INDICATION
     Dosage: 5 MG, QD
     Route: 048
  4. IPILIMUMAB [Suspect]
     Dosage: 10 MG/KG, 90 MINUTES ON DAY 1, Q12 WEEKS
     Route: 042
  5. ACETYLSALICYLIC ACID SRT [Concomitant]
     Indication: PRODUCT USED FOR UNKNOWN INDICATION
     Dosage: 100 MG, QD
     Route: 048
  6. LORAZEPAM [Concomitant]
     Indication: ANXIETY
     Dosage: 1 MG, QD, PRN
     Route: 048
  7. OMEPRAZOLE [Concomitant]
     Indication: PRODUCT USED FOR UNKNOWN INDICATION
     Dosage: 20 MG, BID
     Route: 048
  8. IPILIMUMAB [Suspect]
     Indication: MALIGNANT MELANOMA
     Dosage: 10 MG/KG, ONCE
     Route: 042
     Dates: start: 20110802
  9. LEUKINE [Suspect]
     Indication: MALIGNANT MELANOMA
     Dosage: 250 MCG, QD (ON DAYS 1-14) INDUCTION THERAPY
     Route: 058
     Dates: start: 20110802
  10. COLACE [Concomitant]
     Indication: CONSTIPATION
     Dosage: 100 MG, BID PRN
     Route: 048
  11. LORAZEPAM [Concomitant]
     Indication: INSOMNIA
  12. OXYCODONE HCL [Concomitant]
     Indication: PAIN
     Dosage: 5 MG, Q4HR, PRN
     Route: 048

REACTIONS (7)
  - PRURITUS [None]
  - DYSPNOEA [None]
  - FATIGUE [None]
  - DECREASED APPETITE [None]
  - BLOOD PRESSURE INCREASED [None]
  - NAUSEA [None]
  - RASH MACULO-PAPULAR [None]
